FAERS Safety Report 5755068-7 (Version None)
Quarter: 2008Q2

REPORT INFORMATION
  Report Type: 
  Country: None (occurrence: None)
  Receive Date: 20080602
  Receipt Date: 20080529
  Transmission Date: 20081010
  Serious: Yes (Hospitalization, Other)
  Sender: FDA-Public Use
  Company Number: FR-BRISTOL-MYERS SQUIBB COMPANY-14210553

PATIENT
  Age: 63 Year
  Sex: Female

DRUGS (1)
  1. ABILIFY [Suspect]
     Indication: SCHIZOPHRENIA
     Dosage: STARTED IN OCT-2007: 15MG/D NOV07 INCREASED TO 30MG/D JAN08 REDUCED TO 15MG/D REDUCED TO 10MG/D
     Dates: start: 20071001

REACTIONS (2)
  - FEMORAL NECK FRACTURE [None]
  - URINARY RETENTION [None]
